FAERS Safety Report 7086202-7 (Version None)
Quarter: 2010Q4

REPORT INFORMATION
  Report Type: 
  Country: None (occurrence: None)
  Receive Date: 20101105
  Receipt Date: 20101025
  Transmission Date: 20110411
  Serious: Yes (Disabling, Other)
  Sender: FDA-Public Use
  Company Number: GB-ELI_LILLY_AND_COMPANY-GB201007002217

PATIENT
  Sex: Female

DRUGS (4)
  1. ZYPREXA [Suspect]
     Indication: BIPOLAR DISORDER
     Dosage: 10 MG, DAILY (1/D)
     Route: 048
     Dates: start: 20090612, end: 20100701
  2. DULOXETINE HYDROCHLORIDE [Suspect]
     Indication: BIPOLAR DISORDER
     Dosage: 60 MG, UNKNOWN
     Route: 048
     Dates: start: 20090513
  3. DEPAKOTE [Concomitant]
     Indication: BIPOLAR DISORDER
     Dosage: 250 MG, UNKNOWN
     Route: 048
     Dates: start: 20000308
  4. INSULIN [Concomitant]
     Indication: DIABETES MELLITUS
     Dosage: UNK, UNKNOWN
     Route: 065

REACTIONS (3)
  - CONFUSIONAL STATE [None]
  - HYDROCEPHALUS [None]
  - OFF LABEL USE [None]
